FAERS Safety Report 5857901-7 (Version None)
Quarter: 2008Q3

REPORT INFORMATION
  Report Type: 
  Country: None (occurrence: None)
  Receive Date: 20080825
  Receipt Date: 20080825
  Transmission Date: 20090109
  Serious: Yes (Life-Threatening, Hospitalization, Disabling)
  Sender: FDA-Public Use
  Company Number: None

PATIENT
  Age: 50 Year
  Sex: Male
  Weight: 128.368 kg

DRUGS (2)
  1. LOVENOX 150 MG/ML 1 ML SYRINGE SANOLI-AVENTIS USLLC [Suspect]
     Indication: DEEP VEIN THROMBOSIS
     Dosage: 2/DAY SQ
     Route: 058
     Dates: start: 20080611, end: 20080618
  2. COUMADIN [Suspect]
     Indication: DEEP VEIN THROMBOSIS
     Dosage: 1/DAY PO
     Route: 048
     Dates: start: 20080611

REACTIONS (13)
  - ABDOMINAL PAIN LOWER [None]
  - DIALYSIS [None]
  - DIARRHOEA [None]
  - FOCAL SEGMENTAL GLOMERULOSCLEROSIS [None]
  - INJECTION SITE PRURITUS [None]
  - NAUSEA [None]
  - NEPHROTIC SYNDROME [None]
  - OEDEMA [None]
  - RASH [None]
  - RENAL FAILURE ACUTE [None]
  - RENAL TUBULAR NECROSIS [None]
  - VOMITING [None]
  - WEIGHT INCREASED [None]
